FAERS Safety Report 8050113-0 (Version None)
Quarter: 2012Q1

REPORT INFORMATION
  Report Type: 
  Country: None (occurrence: None)
  Receive Date: 20120117
  Receipt Date: 20120109
  Transmission Date: 20120608
  Serious: Yes (Other)
  Sender: FDA-Public Use
  Company Number: CA-MERCK-1201USA00996

PATIENT
  Age: 73 Year
  Sex: Female
  Weight: 49 kg

DRUGS (2)
  1. ATACAND HCT [Concomitant]
     Route: 065
  2. FOSAMAX [Suspect]
     Route: 048

REACTIONS (3)
  - ADVERSE EVENT [None]
  - STRESS FRACTURE [None]
  - PAIN [None]
